FAERS Safety Report 23636390 (Version 1)
Quarter: 2024Q1

REPORT INFORMATION
  Report Type: Other
  Country: GB (occurrence: None)
  Receive Date: 20240315
  Receipt Date: 20240315
  Transmission Date: 20240409
  Serious: Yes (Hospitalization)
  Sender: FDA-Public Use
  Company Number: GB-ROCHE-3524178

PATIENT
  Sex: Female

DRUGS (1)
  1. OCREVUS [Suspect]
     Active Substance: OCRELIZUMAB
     Indication: Multiple sclerosis
     Dosage: COMMENCED TREATMENT IN SEPTEMBER 2023- EXACT DATE UNAVAILABLE. 600MG 6 MONTHLY. ;ONGOING: YES
     Route: 041
     Dates: start: 202309

REACTIONS (2)
  - Hypokalaemia [Recovered/Resolved]
  - Liver function test abnormal [Unknown]
